FAERS Safety Report 9255390 (Version 2)
Quarter: 2013Q2

REPORT INFORMATION
  Report Type: Spontaneous
  Country: US (occurrence: US)
  Receive Date: 20130425
  Receipt Date: 20130517
  Transmission Date: 20140414
  Serious: Yes (Death, Hospitalization)
  Sender: FDA-Public Use
  Company Number: US-COVIDIEN/TYCO HEALTHCARE/MALLINCKRODT-T201301730

PATIENT
  Sex: Male

DRUGS (2)
  1. OPTIRAY [Suspect]
     Indication: COMPUTERISED TOMOGRAM
     Dosage: 100 ML, SINGLE
     Route: 042
     Dates: start: 20130415, end: 20130415
  2. METFORMIN [Interacting]
     Indication: DIABETES MELLITUS
     Dosage: UNK

REACTIONS (4)
  - Coma [Fatal]
  - Cardiac arrest [Fatal]
  - Incoherent [Unknown]
  - Productive cough [Unknown]
